FAERS Safety Report 6142142-9 (Version None)
Quarter: 2009Q2

REPORT INFORMATION
  Report Type: 
  Country: None (occurrence: None)
  Receive Date: 20090402
  Receipt Date: 20090327
  Transmission Date: 20091009
  Serious: Yes (Hospitalization, Disabling, Other)
  Sender: FDA-Public Use
  Company Number: US-MERCK-0808USA01993

PATIENT
  Age: 54 Year
  Sex: Female
  Weight: 75 kg

DRUGS (3)
  1. FOSAMAX [Suspect]
     Indication: OSTEOPENIA
     Route: 048
     Dates: start: 20011201, end: 20060301
  2. FOSAMAX [Suspect]
     Indication: OSTEOPOROSIS PROPHYLAXIS
     Route: 048
     Dates: start: 20011201, end: 20060301
  3. FOSAMAX PLUS D [Suspect]
     Indication: OSTEOPOROSIS
     Route: 048
     Dates: start: 20060301, end: 20070101

REACTIONS (20)
  - ANAEMIA POSTOPERATIVE [None]
  - ELECTROLYTE IMBALANCE [None]
  - EXOSTOSIS [None]
  - FALL [None]
  - FEMUR FRACTURE [None]
  - FOOT FRACTURE [None]
  - HEADACHE [None]
  - HEPATIC ENZYME INCREASED [None]
  - HYPERCHOLESTEROLAEMIA [None]
  - HYPERTENSION [None]
  - HYPOKALAEMIA [None]
  - HYPOPHOSPHATAEMIA [None]
  - LOW TURNOVER OSTEOPATHY [None]
  - NECK INJURY [None]
  - OSTEOPOROSIS [None]
  - RENAL CYST [None]
  - URINARY TRACT INFECTION [None]
  - VITAMIN D DEFICIENCY [None]
  - WEIGHT DECREASED [None]
  - WRIST FRACTURE [None]
